FAERS Safety Report 26082095 (Version 1)
Quarter: 2025Q4

REPORT INFORMATION
  Report Type: Spontaneous
  Country: US (occurrence: US)
  Receive Date: 20251124
  Receipt Date: 20251124
  Transmission Date: 20260118
  Serious: Yes (Other)
  Sender: INSMED
  Company Number: US-INSMED, INC.-2025-06967-US

PATIENT
  Sex: Female

DRUGS (21)
  1. BRINSUPRI [Suspect]
     Active Substance: BRENSOCATIB
     Indication: Bronchiectasis
     Dosage: 25 MILLIGRAM, QD
     Route: 048
     Dates: start: 20251030
  2. CALCIUM CITRATE [Concomitant]
     Active Substance: CALCIUM CITRATE
     Indication: Product used for unknown indication
     Dosage: UNK, UNK
     Route: 065
  3. DORZOLAMIDE [Concomitant]
     Active Substance: DORZOLAMIDE
     Indication: Product used for unknown indication
     Dosage: UNK, UNK
     Route: 065
  4. TIMOLOL [Concomitant]
     Active Substance: TIMOLOL
     Indication: Product used for unknown indication
     Dosage: UNK, UNK
     Route: 065
  5. LATANOPROST [Concomitant]
     Active Substance: LATANOPROST
     Indication: Product used for unknown indication
     Dosage: UNK, UNK
     Route: 065
  6. LEVOFLOXACIN [Concomitant]
     Active Substance: LEVOFLOXACIN
     Indication: Product used for unknown indication
     Dosage: UNK, UNK
     Route: 065
  7. LEVOTHYROXINE [Concomitant]
     Active Substance: LEVOTHYROXINE
     Indication: Product used for unknown indication
     Dosage: UNK, UNK
     Route: 065
  8. MAGNESIUM ASPARTATE [Concomitant]
     Active Substance: MAGNESIUM ASPARTATE
     Indication: Product used for unknown indication
     Dosage: UNK, UNK
     Route: 065
  9. METOPROLOL [Concomitant]
     Active Substance: METOPROLOL
     Indication: Product used for unknown indication
     Dosage: UNK, UNK
     Route: 065
  10. NIACIN [Concomitant]
     Active Substance: NIACIN
     Indication: Product used for unknown indication
     Dosage: UNK, UNK
     Route: 065
  11. POTASSIUM CHLORIDE [Concomitant]
     Active Substance: POTASSIUM CHLORIDE
     Indication: Product used for unknown indication
     Dosage: UNK, UNK
     Route: 065
  12. ROSUVASTATIN [Concomitant]
     Active Substance: ROSUVASTATIN
     Indication: Product used for unknown indication
     Dosage: UNK, UNK
     Route: 065
  13. SODIUM CHLORIDE [Concomitant]
     Active Substance: SODIUM CHLORIDE
     Indication: Product used for unknown indication
     Dosage: UNK, UNK
     Route: 065
  14. TOBRAMYCIN [Concomitant]
     Active Substance: TOBRAMYCIN
     Indication: Product used for unknown indication
     Dosage: UNK, UNK
     Route: 065
  15. VALSARTAN [Concomitant]
     Active Substance: VALSARTAN
     Indication: Product used for unknown indication
     Dosage: UNK, UNK
     Route: 065
  16. VITAMIN B12 [Concomitant]
     Active Substance: CYANOCOBALAMIN
     Indication: Product used for unknown indication
     Dosage: UNK, UNK
     Route: 065
  17. ASCORBIC ACID [Concomitant]
     Active Substance: ASCORBIC ACID
     Indication: Product used for unknown indication
     Dosage: UNK, UNK
     Route: 065
  18. VITAMIN D3 [Concomitant]
     Active Substance: CHOLECALCIFEROL
     Indication: Product used for unknown indication
     Dosage: UNK, UNK
     Route: 065
  19. PRIVIGEN [Concomitant]
     Active Substance: HUMAN IMMUNOGLOBULIN G
     Indication: Product used for unknown indication
     Dosage: UNK, UNK
     Route: 065
  20. MULTI VITAMIN AND FLUORIDE SUPPLEMENTAL [Concomitant]
     Indication: Product used for unknown indication
     Dosage: UNK, UNK
     Route: 065
  21. MENATETRENONE [Concomitant]
     Active Substance: MENATETRENONE
     Indication: Product used for unknown indication

REACTIONS (1)
  - Pneumonia [Unknown]

NARRATIVE: CASE EVENT DATE: 20250101
